FAERS Safety Report 5912784-1 (Version None)
Quarter: 2008Q4

REPORT INFORMATION
  Report Type: 
  Country: None (occurrence: None)
  Receive Date: 20081008
  Receipt Date: 20080626
  Transmission Date: 20090506
  Serious: No
  Sender: FDA-Public Use
  Company Number: US-ABBOTT-08P-163-0459747-00

PATIENT
  Sex: Male
  Weight: 22.7 kg

DRUGS (3)
  1. DEPAKOTE [Suspect]
     Indication: BIPOLAR DISORDER
     Route: 048
     Dates: start: 20061218, end: 20070130
  2. DEPAKOTE [Suspect]
     Route: 048
     Dates: start: 20070130, end: 20070801
  3. DEPAKOTE [Suspect]
     Route: 048
     Dates: start: 20070801, end: 20070901

REACTIONS (1)
  - TRICHORRHEXIS [None]
